FAERS Safety Report 5673969-5 (Version None)
Quarter: 2008Q1

REPORT INFORMATION
  Report Type: 
  Country: None (occurrence: None)
  Receive Date: 20080317
  Receipt Date: 20080303
  Transmission Date: 20080703
  Serious: Yes (Other)
  Sender: FDA-Public Use
  Company Number: JPI-P-003006

PATIENT
  Age: 78 Year
  Sex: Female

DRUGS (11)
  1. LUVOX [Suspect]
     Indication: BIPOLAR I DISORDER
     Dosage: (50 MG, D), ORAL; (25 MG, D), ORAL
     Route: 048
     Dates: start: 20071111, end: 20071114
  2. LUVOX [Suspect]
     Indication: BIPOLAR I DISORDER
     Dosage: (50 MG, D), ORAL; (25 MG, D), ORAL
     Route: 048
     Dates: start: 20071115, end: 20071125
  3. QUETIAPINE FUMARATE [Concomitant]
  4. SINEMET [Concomitant]
  5. PRAMIPEXOLE HYDROCHLORIDE HYDRATE (PRAMIPEXOLE DIHYDROCHLORIDE) [Concomitant]
  6. SPIRONOLACTONE [Concomitant]
  7. FUROSEMIDE [Concomitant]
  8. METILDIGOXIN (METILDIGOXIN) [Concomitant]
  9. ACETYLSALICYLIC ACID SRT [Concomitant]
  10. WARFARIN POTASSIUM (WARFARIN POTASSIUM) [Concomitant]
  11. TRICHLORMETHIAZIDE [Concomitant]

REACTIONS (1)
  - MANIA [None]
